FAERS Safety Report 19604246 (Version 2)
Quarter: 2021Q3

REPORT INFORMATION
  Report Type: Spontaneous
  Country: US (occurrence: US)
  Receive Date: 20210723
  Receipt Date: 20210929
  Transmission Date: 20211014
  Serious: Yes (Other)
  Sender: FDA-Public Use
  Company Number: US-MALLINCKRODT PHARMACEUTICALS-T202103193

PATIENT
  Sex: Female

DRUGS (2)
  1. H.P. ACTHAR [Suspect]
     Active Substance: CORTICOTROPIN
     Indication: RHEUMATOID ARTHRITIS
     Dosage: 1 MILLILITER (80 UNITS), BIW
     Route: 058
     Dates: start: 202104, end: 2021
  2. H.P. ACTHAR [Suspect]
     Active Substance: CORTICOTROPIN
     Dosage: 1 MILLILITER (80 UNITS), BIW
     Route: 058
     Dates: start: 2021, end: 2021

REACTIONS (3)
  - Biopsy kidney [Unknown]
  - Drug ineffective [Unknown]
  - Renal disorder [Unknown]

NARRATIVE: CASE EVENT DATE: 2021
